FAERS Safety Report 12120644 (Version 1)
Quarter: 2016Q1

REPORT INFORMATION
  Report Type: Spontaneous
  Country: None (occurrence: US)
  Receive Date: 20160226
  Receipt Date: 20160226
  Transmission Date: 20160526
  Serious: No
  Sender: FDA-Public Use
  Company Number: US-ALLERGAN-1402481US

PATIENT
  Sex: Male

DRUGS (2)
  1. MEDICATIONS NOS [Concomitant]
     Active Substance: UNSPECIFIED INGREDIENT
     Indication: PRODUCT USED FOR UNKNOWN INDICATION
  2. REFRESH OPTIVE [Suspect]
     Active Substance: CARBOXYMETHYLCELLULOSE SODIUM\GLYCERIN
     Indication: EYE IRRITATION
     Dosage: UNK
     Route: 047
     Dates: start: 20140206, end: 20140206

REACTIONS (3)
  - Scleral hyperaemia [Unknown]
  - Eye irritation [Recovering/Resolving]
  - Vision blurred [Unknown]
